FAERS Safety Report 7993297-2 (Version None)
Quarter: 2011Q4

REPORT INFORMATION
  Report Type: 
  Country: None (occurrence: None)
  Receive Date: 20111219
  Receipt Date: 20101110
  Transmission Date: 20120403
  Serious: No
  Sender: FDA-Public Use
  Company Number: US-ASTRAZENECA-2010SE53586

PATIENT
  Age: 50 Year
  Sex: Male
  Weight: 90.7 kg

DRUGS (3)
  1. CRESTOR [Suspect]
     Indication: HYPERCHOLESTEROLAEMIA
     Route: 048
     Dates: start: 20100901
  2. TEVADIN [Concomitant]
     Indication: HYPERTENSION
  3. CRESTOR [Suspect]
     Route: 048
     Dates: start: 20101001

REACTIONS (8)
  - PALPITATIONS [None]
  - SKIN ATROPHY [None]
  - SKIN WRINKLING [None]
  - ARTHRALGIA [None]
  - PAIN IN EXTREMITY [None]
  - ASTHENIA [None]
  - MUSCLE TWITCHING [None]
  - BLOOD CREATINE PHOSPHOKINASE INCREASED [None]
